FAERS Safety Report 23430036 (Version 1)
Quarter: 2024Q1

REPORT INFORMATION
  Report Type: Spontaneous
  Country: US (occurrence: None)
  Receive Date: 20240122
  Receipt Date: 20240122
  Transmission Date: 20240410
  Serious: No
  Sender: FDA-Public Use
  Company Number: US-Encube-000554

PATIENT
  Age: 68 Year
  Sex: Male

DRUGS (2)
  1. DICLOFENAC SODIUM [Suspect]
     Active Substance: DICLOFENAC\DICLOFENAC SODIUM
     Indication: Arthritis
     Dates: start: 20230904, end: 20240111
  2. DICLOFENAC SODIUM [Suspect]
     Active Substance: DICLOFENAC\DICLOFENAC SODIUM
     Indication: Arthritis
     Dates: start: 202401

REACTIONS (2)
  - Drug ineffective [Unknown]
  - Suspected counterfeit product [Unknown]
